FAERS Safety Report 7711567-X (Version None)
Quarter: 2011Q3

REPORT INFORMATION
  Report Type: 
  Country: None (occurrence: None)
  Receive Date: 20110826
  Receipt Date: 20110818
  Transmission Date: 20111222
  Serious: Yes (Other)
  Sender: FDA-Public Use
  Company Number: US-BAYER-2011-074583

PATIENT
  Sex: Female

DRUGS (1)
  1. MIRENA [Suspect]
     Indication: CONTRACEPTION
     Dosage: 20 MCG/24HR, CONT
     Route: 015
     Dates: start: 20100401

REACTIONS (6)
  - ALOPECIA [None]
  - VAGINAL INFECTION [None]
  - VULVOVAGINAL DRYNESS [None]
  - DYSPAREUNIA [None]
  - DEVICE DISLOCATION [None]
  - VULVOVAGINAL MYCOTIC INFECTION [None]
